FAERS Safety Report 6315839-5 (Version None)
Quarter: 2009Q3

REPORT INFORMATION
  Report Type: 
  Country: None (occurrence: None)
  Receive Date: 20090820
  Receipt Date: 20070129
  Transmission Date: 20100115
  Serious: Yes (Hospitalization, Other)
  Sender: FDA-Public Use
  Company Number: US-ASTRAZENECA-2006UW24028

PATIENT
  Age: 42 Year
  Sex: Male
  Weight: 73.9 kg

DRUGS (16)
  1. SEROQUEL [Suspect]
     Indication: INSOMNIA
     Route: 048
     Dates: start: 19960101, end: 20010101
  2. SEROQUEL [Suspect]
     Dosage: 25 MG TO 200 MG DAILY
     Route: 048
     Dates: start: 20031014
  3. GEODON [Concomitant]
     Dates: start: 19960101, end: 19970101
  4. ZYPREXA [Concomitant]
  5. TRAZODONE HCL [Concomitant]
     Route: 048
     Dates: start: 20010620
  6. ABACAVIR [Concomitant]
     Route: 048
     Dates: start: 20010928
  7. INDINIVIR SULFATE [Concomitant]
     Route: 048
     Dates: start: 20010928
  8. LAMIVUDINE [Concomitant]
     Route: 048
     Dates: start: 20010928
  9. ATOVAQUONE [Concomitant]
     Route: 048
     Dates: start: 20010928
  10. EPOGEN [Concomitant]
     Dosage: 40,000 UNITS EVERY WEEK
     Route: 058
     Dates: start: 20010928
  11. VIREAD [Concomitant]
     Dates: start: 20021202
  12. SUSTIVA [Concomitant]
     Dates: start: 20021126
  13. HYDROCORTISONE [Concomitant]
     Dosage: 20 MG TO 40 MG DAILY
     Route: 048
     Dates: start: 20040305
  14. KLONOPIN [Concomitant]
     Indication: ANXIETY
     Dosage: 2 NIGHTLY, 1 MG TABLETS, THE PATIENT CAN TAKE UP TO 1/2 TAB TO TID
     Dates: start: 20040305
  15. RIBAVIRIN [Concomitant]
     Dates: start: 20040305
  16. KELETRA [Concomitant]

REACTIONS (7)
  - DIABETES MELLITUS [None]
  - DIABETIC KETOACIDOSIS [None]
  - HYPERGLYCAEMIA [None]
  - HYPOGLYCAEMIA [None]
  - NEUROPATHY PERIPHERAL [None]
  - PANCREATIC DISORDER [None]
  - TYPE 2 DIABETES MELLITUS [None]
